FAERS Safety Report 4769046-8 (Version None)
Quarter: 2005Q3

REPORT INFORMATION
  Report Type: 
  Country: None (occurrence: None)
  Receive Date: 20050914
  Receipt Date: 20050901
  Transmission Date: 20060218
  Serious: Yes (Hospitalization, Other)
  Sender: FDA-Public Use
  Company Number: 05-07-1319

PATIENT
  Age: 86 Year
  Sex: Female

DRUGS (15)
  1. CLOZAPINE [Suspect]
     Indication: ANXIETY
     Dosage: 62.5-100MG QD, ORAL
     Route: 048
     Dates: start: 20041201, end: 20050701
  2. CLOZAPINE [Suspect]
     Indication: DEPRESSION
     Dosage: 62.5-100MG QD, ORAL
     Route: 048
     Dates: start: 20041201, end: 20050701
  3. SINEMET [Concomitant]
  4. FUROSEMIDE [Concomitant]
  5. OMEPRAZOLE [Concomitant]
  6. RISPERIDONE [Concomitant]
  7. DONEPEZIL HYDROCHLORIDE [Concomitant]
  8. GABAPENTIN [Concomitant]
  9. NITROFURANTOIN [Concomitant]
  10. FOLIC ACID [Concomitant]
  11. BREVA [Concomitant]
  12. CEPHALEXIN [Concomitant]
  13. CLOPIDOGREL BISULFATE [Concomitant]
  14. CITALOPRAM (TABLETS) [Concomitant]
  15. MEMANTINE HCL [Concomitant]

REACTIONS (1)
  - CEREBROVASCULAR ACCIDENT [None]
